FAERS Safety Report 23401844 (Version 1)
Quarter: 2024Q1

REPORT INFORMATION
  Report Type: Spontaneous
  Country: US (occurrence: US)
  Receive Date: 20240115
  Receipt Date: 20240115
  Transmission Date: 20240410
  Serious: Yes (Hospitalization, Other)
  Sender: FDA-Public Use
  Company Number: US-IGSA-BIG0027127

PATIENT
  Sex: Male
  Weight: 65.306 kg

DRUGS (3)
  1. GAMUNEX-C [Suspect]
     Active Substance: HUMAN IMMUNOGLOBULIN G
     Indication: Chronic inflammatory demyelinating polyradiculoneuropathy
     Dosage: 120 GRAM, TOTAL
     Route: 042
     Dates: start: 20231111, end: 20231112
  2. GAMUNEX-C [Suspect]
     Active Substance: HUMAN IMMUNOGLOBULIN G
     Indication: Encephalitis autoimmune
     Dosage: 5 GRAM, TOTAL
     Route: 042
     Dates: start: 20231111, end: 20231111
  3. GAMUNEX-C [Suspect]
     Active Substance: HUMAN IMMUNOGLOBULIN G
     Indication: Off label use

REACTIONS (8)
  - Pyrexia [Recovered/Resolved]
  - Dizziness [Unknown]
  - Fatigue [Unknown]
  - Rash [Unknown]
  - Ageusia [Unknown]
  - Drug ineffective [Unknown]
  - Nausea [Unknown]
  - Vision blurred [Unknown]
